FAERS Safety Report 8773126 (Version 1)
Quarter: 2012Q4

REPORT INFORMATION
  Report Type: Report from Study
  Country: JP (occurrence: JP)
  Receive Date: 20120907
  Receipt Date: 20120907
  Transmission Date: 20130627
  Serious: Yes (Death)
  Sender: FDA-Public Use
  Company Number: JP-009507513-2011SP014628

PATIENT

DRUGS (18)
  1. TEMOZOLOMIDE [Suspect]
     Indication: GLIOBLASTOMA MULTIFORME
     Dosage: 150 mg/m2, QD
     Route: 048
     Dates: start: 20061221, end: 20061225
  2. TEMOZOLOMIDE [Suspect]
     Dosage: 200 mg/m2, QD
     Route: 048
     Dates: start: 20070125, end: 20070129
  3. TEMOZOLOMIDE [Suspect]
     Dosage: 200 mg/m2, QD
     Route: 048
     Dates: start: 20070227, end: 20070303
  4. TEMOZOLOMIDE [Suspect]
     Dosage: 200 mg/m2, QD
     Route: 048
     Dates: start: 20070410, end: 20070414
  5. TEMOZOLOMIDE [Suspect]
     Dosage: 200 mg/m2, QD
     Route: 048
     Dates: start: 20070515, end: 20070519
  6. TEMOZOLOMIDE [Suspect]
     Dosage: 200 mg/m2, QD
     Route: 048
     Dates: start: 20070814, end: 20070818
  7. TEMOZOLOMIDE [Suspect]
     Dosage: 200 mg/m2, QD
     Route: 048
     Dates: start: 20070925, end: 20070929
  8. TEMOZOLOMIDE [Suspect]
     Dosage: 200 mg/m2, QD
     Route: 048
     Dates: start: 20071030, end: 20071103
  9. TEMOZOLOMIDE [Suspect]
     Dosage: 200 mg/m2, qd
     Dates: end: 20090209
  10. TEMOZOLOMIDE [Suspect]
     Dosage: UNK
  11. DECADRON [Concomitant]
     Dosage: UNK
     Route: 048
  12. LOXONIN [Concomitant]
     Indication: PROPHYLAXIS
     Route: 048
  13. MYONAL [Concomitant]
     Indication: PROPHYLAXIS
     Route: 048
  14. SELBEX [Concomitant]
     Indication: PROPHYLAXIS
     Route: 048
  15. EXCEGRAN [Concomitant]
     Indication: PROPHYLAXIS
     Dosage: UNK
     Route: 048
     Dates: start: 20061221
  16. ZANTAC [Concomitant]
     Indication: PROPHYLAXIS
     Dosage: UNK
     Route: 048
     Dates: start: 20061221
  17. ZOFRAN ZYDIS [Concomitant]
     Indication: PROPHYLAXIS
     Dosage: UNK
     Route: 048
     Dates: start: 20061221
  18. PARAPLATIN [Concomitant]
     Dosage: UNK
     Route: 042
     Dates: start: 20061221

REACTIONS (5)
  - Disease progression [Fatal]
  - White blood cell count increased [Recovered/Resolved]
  - Platelet count decreased [Recovered/Resolved]
  - Neutrophil count decreased [Recovered/Resolved]
  - Platelet count decreased [Recovered/Resolved]
